FAERS Safety Report 22973235 (Version 2)
Quarter: 2023Q4

REPORT INFORMATION
  Report Type: Spontaneous
  Country: US (occurrence: None)
  Receive Date: 20230922
  Receipt Date: 20231129
  Transmission Date: 20240110
  Serious: Yes (Hospitalization)
  Sender: FDA-Public Use
  Company Number: US-ROCHE-3423830

PATIENT
  Age: 78 Year
  Sex: Male

DRUGS (2)
  1. ESBRIET [Suspect]
     Active Substance: PIRFENIDONE
     Indication: Idiopathic pulmonary fibrosis
     Route: 048
     Dates: start: 202009
  2. ESBRIET [Suspect]
     Active Substance: PIRFENIDONE
     Indication: Pulmonary arterial hypertension

REACTIONS (6)
  - Hypoxia [Unknown]
  - Pneumothorax [Unknown]
  - Atrial fibrillation [Unknown]
  - Hypernatraemia [Unknown]
  - Hypertension [Unknown]
  - Respiratory failure [Unknown]

NARRATIVE: CASE EVENT DATE: 20231103
